FAERS Safety Report 7311768-9 (Version None)
Quarter: 2011Q1

REPORT INFORMATION
  Report Type: 
  Country: None (occurrence: None)
  Receive Date: 20110224
  Receipt Date: 20110217
  Transmission Date: 20110831
  Serious: Yes (Death, Hospitalization, Other)
  Sender: FDA-Public Use
  Company Number: US-BAYER-2011-016163

PATIENT
  Sex: Female

DRUGS (1)
  1. YAZ [Suspect]
     Indication: PRODUCT USED FOR UNKNOWN INDICATION
     Dosage: UNK
     Route: 048
     Dates: start: 20080101, end: 20081028

REACTIONS (8)
  - RESPIRATORY FAILURE [None]
  - ENCEPHALOPATHY [None]
  - THROMBOSIS [None]
  - CARDIO-RESPIRATORY ARREST [None]
  - SUDDEN CARDIAC DEATH [None]
  - METABOLIC ACIDOSIS [None]
  - CARDIAC FAILURE [None]
  - CARDIOMYOPATHY [None]
